FAERS Safety Report 6410524-3 (Version None)
Quarter: 2009Q4

REPORT INFORMATION
  Report Type: 
  Country: None (occurrence: None)
  Receive Date: 20091022
  Receipt Date: 20091019
  Transmission Date: 20100525
  Serious: Yes (Death, Hospitalization)
  Sender: FDA-Public Use
  Company Number: DE-BRISTOL-MYERS SQUIBB COMPANY-14797500

PATIENT
  Age: 67 Year
  Sex: Female

DRUGS (6)
  1. ORENCIA [Suspect]
     Indication: RHEUMATOID ARTHRITIS
     Dosage: THERAPYDATES:03APR08,16APR,15MAY,12JUN,10JUL,6AUG,4SEP,1OCT,29OCT,26NOV,2JAN09,11FEB,11MAR,7MAY,4JUN
     Route: 042
     Dates: start: 20080403, end: 20090604
  2. MORPHINE SULFATE [Suspect]
  3. BUPRENORPHINE [Suspect]
     Indication: PAIN
     Dosage: BUPRENORPHINE PLASTER , EVERY 3 DAY
     Route: 062
  4. STILNOX [Suspect]
     Dosage: 1 DF- 1 TAB AT NIGHT
     Route: 048
  5. RAMIPRIL [Suspect]
  6. LYRICA [Suspect]
     Indication: PAIN

REACTIONS (13)
  - BACK PAIN [None]
  - CARDIAC FAILURE [None]
  - DEHYDRATION [None]
  - DIARRHOEA [None]
  - GASTRIC ULCER [None]
  - GASTROINTESTINAL HAEMORRHAGE [None]
  - OVERDOSE [None]
  - PNEUMONIA [None]
  - REFLUX OESOPHAGITIS [None]
  - RENAL FAILURE [None]
  - STAPHYLOCOCCAL SEPSIS [None]
  - STUPOR [None]
  - SYNCOPE [None]
